FAERS Safety Report 6215558-X (Version None)
Quarter: 2009Q2

REPORT INFORMATION
  Report Type: 
  Country: None (occurrence: None)
  Receive Date: 20090605
  Receipt Date: 20090525
  Transmission Date: 20091009
  Serious: Yes (Other)
  Sender: FDA-Public Use
  Company Number: HU-RANBAXY-2009RR-24555

PATIENT
  Age: 39 Year
  Sex: Male

DRUGS (7)
  1. ASPIRIN [Suspect]
     Indication: ANTIPLATELET THERAPY
     Dosage: 100 MG, UNK
  2. ASPIRIN [Suspect]
     Dosage: UNK
  3. DICLOFENAC SODIUM [Suspect]
     Dosage: 75 MG, BID
  4. MELOXICAM [Suspect]
     Indication: INTERVERTEBRAL DISC PROTRUSION
     Dosage: 15 MG, BID
  5. CLOPIDOGREL [Concomitant]
     Indication: ANTIPLATELET THERAPY
     Dosage: 75 MG, UNK
  6. CLOPIDOGREL [Concomitant]
     Dosage: UNK
  7. CYPHER [Concomitant]

REACTIONS (1)
  - THROMBOSIS [None]
